FAERS Safety Report 9892221 (Version 2)
Quarter: 2014Q1

REPORT INFORMATION
  Report Type: Spontaneous
  Country: BR (occurrence: BR)
  Receive Date: 20140211
  Receipt Date: 20140213
  Transmission Date: 20141002
  Serious: Yes (Other)
  Sender: FDA-Public Use
  Company Number: BR-PFIZER INC-2014036495

PATIENT
  Age: 67 Year
  Sex: Female

DRUGS (4)
  1. LYRICA [Suspect]
     Indication: PAIN IN EXTREMITY
     Dosage: 75 MG, UNK
     Route: 048
  2. LYRICA [Suspect]
     Indication: VARICOSE VEIN
  3. OMEPRAZOLE [Concomitant]
     Indication: GASTRIC DISORDER
     Dosage: UNK
  4. LEXOTAN [Concomitant]
     Indication: SLEEP DISORDER
     Dosage: HALF UNIT (1.5 MG), UNSPECIFIED FREQUENCY

REACTIONS (11)
  - Off label use [Unknown]
  - Deafness [Recovering/Resolving]
  - Speech disorder [Recovering/Resolving]
  - Head discomfort [Recovering/Resolving]
  - Pain [Recovering/Resolving]
  - Bone pain [Recovering/Resolving]
  - Feeling abnormal [Recovered/Resolved]
  - Nodule [Recovered/Resolved]
  - Dysstasia [Recovered/Resolved]
  - Fall [Recovered/Resolved]
  - Lactose intolerance [Unknown]
